FAERS Safety Report 14164826 (Version 1)
Quarter: 2017Q4

REPORT INFORMATION
  Report Type: Spontaneous
  Country: CA (occurrence: CA)
  Receive Date: 20171107
  Receipt Date: 20171107
  Transmission Date: 20180321
  Serious: Yes (Death)
  Sender: FDA-Public Use
  Company Number: CA-PFIZER INC-2017477214

PATIENT
  Age: 58 Year
  Sex: Male

DRUGS (1)
  1. SUTENT [Suspect]
     Active Substance: SUNITINIB MALATE
     Dosage: 50MG CYCLIC (ONCE DAILY FOR 28 DAYS IN A ROW, STOP FOR 14 DAYS THE REPEAT AS DIRECTED KEEP AT ROOM T
     Route: 048
     Dates: start: 20170922

REACTIONS (1)
  - Death [Fatal]
